FAERS Safety Report 23603962 (Version 1)
Quarter: 2024Q1

REPORT INFORMATION
  Report Type: Spontaneous
  Country: IN (occurrence: None)
  Receive Date: 20240307
  Receipt Date: 20240307
  Transmission Date: 20240409
  Serious: Yes (Death)
  Sender: FDA-Public Use
  Company Number: IN-ROCHE-3476017

PATIENT
  Age: 76 Year
  Sex: Male

DRUGS (1)
  1. TECENTRIQ [Suspect]
     Active Substance: ATEZOLIZUMAB
     Indication: Bladder cancer
     Route: 042
     Dates: start: 20230906

REACTIONS (2)
  - Off label use [Unknown]
  - Heart rate decreased [Fatal]
